FAERS Safety Report 7388072-6 (Version None)
Quarter: 2011Q2

REPORT INFORMATION
  Report Type: 
  Country: None (occurrence: None)
  Receive Date: 20110401
  Receipt Date: 20110328
  Transmission Date: 20111010
  Serious: No
  Sender: FDA-Public Use
  Company Number: US-PFIZER INC-2011070684

PATIENT
  Sex: Female

DRUGS (1)
  1. ADVIL LIQUI-GELS [Suspect]
     Dosage: 800 MG, 3X/DAY

REACTIONS (2)
  - FLUSHING [None]
  - FEELING HOT [None]
